FAERS Safety Report 4609558-0 (Version None)
Quarter: 2005Q1

REPORT INFORMATION
  Report Type: 
  Country: None (occurrence: None)
  Receive Date: 20050314
  Receipt Date: 20050314
  Transmission Date: 20050727
  Serious: Yes (Hospitalization)
  Sender: FDA-Public Use
  Company Number: None

PATIENT
  Age: 54 Year
  Sex: Female

DRUGS (5)
  1. CALCITONIN-SALMON [Suspect]
     Indication: OSTEOPENIA
     Dosage: 1 SPRAY DAILY
     Dates: start: 20040218
  2. DIPHENHYDRAMINE HCL [Concomitant]
  3. ALENDRONATE SODIUM [Concomitant]
  4. CYANOCOBALAMIN [Concomitant]
  5. VITAMIN D [Concomitant]

REACTIONS (1)
  - SWELLING FACE [None]
